FAERS Safety Report 8809205 (Version 1)
Quarter: 2012Q4

REPORT INFORMATION
  Report Type: 
  Country: US (occurrence: US)
  Receive Date: 20120926
  Receipt Date: 20120926
  Transmission Date: 20130627
  Serious: Yes (Life-Threatening)
  Sender: FDA-Public Use
  Company Number: US-CELGENEUS-163-21880-12092551

PATIENT
  Age: 70 Year
  Sex: Female

DRUGS (6)
  1. REVLIMID [Suspect]
     Indication: MDS
     Dosage: 10 Milligram
     Route: 048
     Dates: start: 201111
  2. REVLIMID [Suspect]
     Dosage: 10 Milligram
     Route: 048
     Dates: start: 20120905, end: 20120907
  3. EXJADE [Concomitant]
     Indication: IRON OVERLOAD
     Dosage: 1500 Milligram
     Route: 065
  4. CALCIUM [Concomitant]
     Indication: BONE DISORDER
     Route: 065
  5. B6 [Concomitant]
     Indication: REACTION UNEVALUABLE
     Route: 065
  6. MG [Concomitant]
     Indication: LEG CRAMPS
     Route: 065

REACTIONS (1)
  - Angioedema [Recovered/Resolved]
